FAERS Safety Report 8282741-1 (Version None)
Quarter: 2012Q2

REPORT INFORMATION
  Report Type: 
  Country: None (occurrence: None)
  Receive Date: 20120413
  Receipt Date: 20120404
  Transmission Date: 20120825
  Serious: Yes (Hospitalization, Other)
  Sender: FDA-Public Use
  Company Number: JP-UCBSA-052114

PATIENT
  Age: 75 Year
  Sex: Female

DRUGS (15)
  1. PREDNISOLONE [Concomitant]
     Dosage: DAILY DOSE 2.5 MG
     Dates: start: 20090605
  2. GLYCYRRHIZA POWDER COMBINED DRUG [Concomitant]
     Dosage: DAILY DOSE 3.9 G
     Dates: start: 20090605
  3. RABEPRAZOLE SODIUM [Concomitant]
     Dosage: DAILY DOSE 10 MG
     Dates: start: 20090605
  4. MELOXICAM [Concomitant]
     Dates: start: 20090605
  5. CANDESARTAN CILEXETIL [Concomitant]
     Dosage: DAILY DOSE 12 MG
     Dates: start: 20090605
  6. CERTOLIZUMAB PEGOL [Suspect]
     Indication: RHEUMATOID ARTHRITIS
     Route: 058
     Dates: start: 20090605, end: 20120101
  7. METHOTREXATE [Concomitant]
     Dates: start: 20090605
  8. FOLIC ACID [Concomitant]
     Dosage: DAILY DOSE 5 MG/WEEK
     Dates: start: 20090605
  9. NIFEDIPINE [Concomitant]
     Dosage: DAILY DOSE 10 MG
     Dates: start: 20100522
  10. SODIUM HYALURONATE [Concomitant]
     Dosage: DAILY DOSE QS
     Dates: start: 20110510
  11. LOXOPROFEN SODIUM HYDRATE [Concomitant]
     Dosage: DAILY DOSE 60 MG
     Dates: start: 20090605
  12. KETOPROFEN [Concomitant]
     Dosage: DAILY DOSE QS
     Dates: start: 20090605
  13. ALFACALCIDOL [Concomitant]
     Dosage: DAILY DOSE 0.5 MCG
     Dates: start: 20090605
  14. IFENPRODIL TARTRATE [Concomitant]
     Dosage: DAILY DOSE 30 MG
     Dates: start: 20090605
  15. IRSOGLADINE MALEATE [Concomitant]
     Dosage: DAILY DOSE 2 MG
     Dates: start: 20090605

REACTIONS (1)
  - NASAL SINUS CANCER [None]
